FAERS Safety Report 5200490-0 (Version None)
Quarter: 2007Q1

REPORT INFORMATION
  Report Type: 
  Country: None (occurrence: None)
  Receive Date: 20070105
  Receipt Date: 20061228
  Transmission Date: 20070707
  Serious: Yes (Hospitalization, Other)
  Sender: FDA-Public Use
  Company Number: US-ABBOTT-07P-163-0354617-00

PATIENT
  Sex: Male

DRUGS (17)
  1. NORVIR [Suspect]
     Indication: HIV INFECTION
     Route: 048
     Dates: start: 20060629
  2. GS-9137 [Suspect]
     Indication: HIV INFECTION
     Route: 048
     Dates: start: 20061109
  3. GS-9137 [Suspect]
     Route: 048
     Dates: start: 20060629, end: 20061108
  4. DARUNAVIR [Suspect]
     Indication: HIV INFECTION
     Dates: start: 20061101
  5. TENOFOVIR [Concomitant]
     Indication: HIV INFECTION
     Dates: start: 20030101
  6. T-20 [Concomitant]
     Indication: HIV INFECTION
     Dates: start: 20030101
  7. TRIZIVIR [Concomitant]
     Indication: HIV INFECTION
     Dates: start: 20030101
  8. TIPRANAVIR [Concomitant]
     Indication: HIV INFECTION
     Dates: start: 20030101
  9. PAROXETINE HCL [Concomitant]
     Indication: DEPRESSION
     Dates: start: 20030101
  10. RANITIDINE [Concomitant]
     Indication: GASTROOESOPHAGEAL REFLUX DISEASE
     Dates: start: 20030101
  11. QUETIAPINE FUMARATE [Concomitant]
     Indication: INSOMNIA
     Dates: start: 20050101
  12. ACYCLOVIR [Concomitant]
     Indication: HERPES VIRUS INFECTION
     Dates: start: 20040101
  13. AZITHROMYCIN [Concomitant]
     Indication: INFECTION
     Dates: start: 20040101
  14. TESTOSTERONE [Concomitant]
     Indication: HYPOGONADISM
     Route: 062
     Dates: start: 20050601
  15. FLUCONAZOLE [Concomitant]
     Indication: INFECTION
     Dates: start: 20040601
  16. FENTANYL TRANSDERMAL SYSTEM [Concomitant]
     Indication: PAIN
     Dates: start: 20050801
  17. BACTRIM [Concomitant]
     Indication: ANTIFUNGAL PROPHYLAXIS
     Dates: start: 19910101

REACTIONS (5)
  - INFECTION [None]
  - MENINGEAL NEOPLASM [None]
  - NECK MASS [None]
  - NECK PAIN [None]
  - OSTEOMYELITIS BACTERIAL [None]
